FAERS Safety Report 4861579-9 (Version None)
Quarter: 2005Q4

REPORT INFORMATION
  Report Type: 
  Country: None (occurrence: None)
  Receive Date: 20051220
  Receipt Date: 20051209
  Transmission Date: 20060501
  Serious: Yes (Other)
  Sender: FDA-Public Use
  Company Number: CA-BRISTOL-MYERS SQUIBB COMPANY-13218730

PATIENT
  Age: 85 Year
  Sex: Female

DRUGS (13)
  1. TEQUIN [Suspect]
     Route: 048
  2. ASPIRIN [Concomitant]
  3. DIGOXIN [Concomitant]
  4. DILTIAZEM [Concomitant]
  5. FLUTICASONE [Concomitant]
  6. GLYBURIDE [Concomitant]
  7. IPRATROPIUM BROMIDE [Concomitant]
  8. LIPITOR [Concomitant]
  9. LOSARTAN [Concomitant]
  10. METFORMIN HCL [Concomitant]
  11. SALBUTAMOL [Concomitant]
  12. SPIRONOLACTONE [Concomitant]
  13. WARFARIN [Concomitant]

REACTIONS (3)
  - DEPRESSED LEVEL OF CONSCIOUSNESS [None]
  - HYPOGLYCAEMIA [None]
  - SOMNOLENCE [None]
